FAERS Safety Report 5788151-0 (Version None)
Quarter: 2008Q2

REPORT INFORMATION
  Report Type: 
  Country: None (occurrence: None)
  Receive Date: 20080625
  Receipt Date: 20080625
  Transmission Date: 20081010
  Serious: No
  Sender: FDA-Public Use
  Company Number: US-BOEHRINGER INGELHEIM GMBH, GERMANY-2007-BP-16277BP

PATIENT
  Sex: Female
  Weight: 98 kg

DRUGS (4)
  1. MIRAPEX [Suspect]
     Indication: PARKINSON'S DISEASE
     Dates: start: 20020109, end: 20040601
  2. FLAXSEED OIL [Concomitant]
  3. MR6 HERBAL [Concomitant]
  4. VITAMIN [Concomitant]

REACTIONS (8)
  - ANXIETY [None]
  - COMPULSIVE SHOPPING [None]
  - DEPRESSION [None]
  - EMOTIONAL DISTRESS [None]
  - FEAR [None]
  - PAIN [None]
  - PATHOLOGICAL GAMBLING [None]
  - STRESS [None]
